FAERS Safety Report 19995755 (Version 3)
Quarter: 2021Q4

REPORT INFORMATION
  Report Type: Spontaneous
  Country: US (occurrence: US)
  Receive Date: 20211025
  Receipt Date: 20211230
  Transmission Date: 20220304
  Serious: Yes (Other)
  Sender: FDA-Public Use
  Company Number: US-009507513-1810USA004933

PATIENT
  Sex: Male

DRUGS (13)
  1. ZOSTAVAX [Suspect]
     Active Substance: VARICELLA-ZOSTER VIRUS STRAIN OKA/MERCK LIVE ANTIGEN
     Indication: Routine health maintenance
     Dosage: .65 MILLILITER
     Route: 058
     Dates: start: 20131227, end: 20131227
  2. ZOSTAVAX [Suspect]
     Active Substance: VARICELLA-ZOSTER VIRUS STRAIN OKA/MERCK LIVE ANTIGEN
     Indication: Prophylaxis
  3. STERILE DILUENT (WATER) [Suspect]
     Active Substance: WATER
     Dosage: UNK
     Route: 058
     Dates: start: 20131227
  4. VICODIN [Suspect]
     Active Substance: ACETAMINOPHEN\HYDROCODONE BITARTRATE
     Dosage: 5/30 MILLIGRAMS, Q4H
  5. LIPITOR [Concomitant]
     Active Substance: ATORVASTATIN CALCIUM
     Indication: Blood cholesterol
     Dosage: 40 MILLIGRAM
     Route: 048
     Dates: start: 2006
  6. ATACAND [Concomitant]
     Active Substance: CANDESARTAN CILEXETIL
     Indication: Cardiac disorder
     Dosage: 16 MILLIGRAM
     Route: 048
     Dates: start: 2006
  7. ASPIRIN [Concomitant]
     Active Substance: ASPIRIN
     Indication: Cardiac disorder
     Dosage: 81 MILLIGRAM
     Dates: start: 2006
  8. ATENOLOL [Concomitant]
     Active Substance: ATENOLOL
     Indication: Blood pressure measurement
     Dosage: 25 MILLIGRAM
     Dates: start: 2006, end: 202109
  9. ATENOLOL [Concomitant]
     Active Substance: ATENOLOL
     Indication: Chest pain
  10. ATORVASTATIN [Concomitant]
     Active Substance: ATORVASTATIN
     Indication: Blood pressure measurement
     Dosage: 40 MILLIGRAM
     Dates: start: 2006, end: 202109
  11. ATORVASTATIN [Concomitant]
     Active Substance: ATORVASTATIN
     Indication: Blood cholesterol
  12. ASPIRIN [Concomitant]
     Active Substance: ASPIRIN
     Route: 048
  13. METOPROLOL [Concomitant]
     Active Substance: METOPROLOL

REACTIONS (12)
  - Appendicectomy [Unknown]
  - Cholecystectomy [Unknown]
  - Tetanus [Unknown]
  - Neuropathy peripheral [Unknown]
  - Contusion [Unknown]
  - Coronary artery disease [Unknown]
  - Drug ineffective [Unknown]
  - Fall [Unknown]
  - Hyperlipidaemia [Unknown]
  - Rib fracture [Unknown]
  - Vaccination failure [Unknown]
  - Herpes zoster [Recovering/Resolving]

NARRATIVE: CASE EVENT DATE: 20140101
